FAERS Safety Report 7318945-1 (Version None)
Quarter: 2011Q1

REPORT INFORMATION
  Report Type: 
  Country: None (occurrence: None)
  Receive Date: 20110228
  Receipt Date: 20110215
  Transmission Date: 20110831
  Serious: Yes (Death)
  Sender: FDA-Public Use
  Company Number: US-JNJFOC-20110207304

PATIENT
  Sex: Male

DRUGS (6)
  1. NICOTINE [Suspect]
     Route: 065
  2. COCAINE [Suspect]
     Indication: PRODUCT USED FOR UNKNOWN INDICATION
     Route: 065
  3. NICOTINE [Suspect]
     Indication: PRODUCT USED FOR UNKNOWN INDICATION
     Route: 065
  4. OXYCODONE [Suspect]
     Indication: PRODUCT USED FOR UNKNOWN INDICATION
     Route: 065
  5. LEVAMISOLE [Suspect]
     Indication: PRODUCT USED FOR UNKNOWN INDICATION
     Route: 065
  6. ALPRAZOLAM [Suspect]
     Indication: PRODUCT USED FOR UNKNOWN INDICATION
     Route: 065

REACTIONS (12)
  - EXCORIATION [None]
  - ROAD TRAFFIC ACCIDENT [None]
  - HAEMOTHORAX [None]
  - TIBIA FRACTURE [None]
  - AORTIC DISSECTION [None]
  - INJURY [None]
  - SKULL FRACTURE [None]
  - SUBARACHNOID HAEMORRHAGE [None]
  - TRAUMATIC LIVER INJURY [None]
  - FIBULA FRACTURE [None]
  - SPLENIC RUPTURE [None]
  - LACERATION [None]
